FAERS Safety Report 7527468-6 (Version None)
Quarter: 2011Q2

REPORT INFORMATION
  Report Type: 
  Country: None (occurrence: None)
  Receive Date: 20110527
  Receipt Date: 20110517
  Transmission Date: 20111010
  Serious: Yes (Hospitalization)
  Sender: FDA-Public Use
  Company Number: UTC-004851

PATIENT
  Age: 88 Year
  Sex: Female

DRUGS (4)
  1. TYVASO [Suspect]
     Indication: PULMONARY HYPERTENSION
     Dosage: INHALATION
     Route: 055
     Dates: start: 20110101
  2. LASIX [Concomitant]
  3. METOPROLOL TARTRATE [Concomitant]
  4. ADCIRCA [Concomitant]

REACTIONS (3)
  - CORONARY ARTERY OCCLUSION [None]
  - TREATMENT NONCOMPLIANCE [None]
  - MYOCARDIAL INFARCTION [None]
